FAERS Safety Report 5735965-9 (Version None)
Quarter: 2008Q2

REPORT INFORMATION
  Report Type: 
  Country: None (occurrence: None)
  Receive Date: 20080513
  Receipt Date: 20080509
  Transmission Date: 20081010
  Serious: Yes (Death, Other)
  Sender: FDA-Public Use
  Company Number: PHFR2008GB01232

PATIENT
  Age: 39 Year
  Sex: Male

DRUGS (2)
  1. CLOZARIL [Suspect]
     Indication: SCHIZOPHRENIA
     Route: 048
     Dates: start: 20040401
  2. CLOZARIL [Suspect]
     Route: 048
     Dates: start: 19970101, end: 20020101

REACTIONS (2)
  - DEATH [None]
  - VIRAL INFECTION [None]
